FAERS Safety Report 7493569-4 (Version None)
Quarter: 2011Q2

REPORT INFORMATION
  Report Type: 
  Country: None (occurrence: None)
  Receive Date: 20110520
  Receipt Date: 20110512
  Transmission Date: 20111010
  Serious: Yes (Hospitalization, Other)
  Sender: FDA-Public Use
  Company Number: US-B.I. PHARMACEUTICALS,INC./RIDGEFIELD-2011-BP-00970BP

PATIENT
  Sex: Male
  Weight: 81.6 kg

DRUGS (3)
  1. SIMVASTATIN [Concomitant]
     Dosage: 40 MG
  2. LISINOPRIL AND HYDROCHLOROTHIAZIDE [Concomitant]
  3. AGGRENOX [Suspect]
     Indication: CEREBROVASCULAR ACCIDENT
     Route: 048
     Dates: start: 20070114, end: 20091018

REACTIONS (36)
  - SPINAL CORD HAEMORRHAGE [None]
  - CAUDA EQUINA SYNDROME [None]
  - URINARY INCONTINENCE [None]
  - URINARY RETENTION [None]
  - SENSORY LOSS [None]
  - SEXUAL DYSFUNCTION [None]
  - SPINAL CORD INJURY [None]
  - NERVE CONDUCTION STUDIES ABNORMAL [None]
  - NERVE INJURY [None]
  - CONSTIPATION [None]
  - BACK PAIN [None]
  - NERVE STIMULATION TEST ABNORMAL [None]
  - ELECTROMYOGRAM ABNORMAL [None]
  - HYPOREFLEXIA [None]
  - EXTENSOR PLANTAR RESPONSE [None]
  - INCORRECT DOSE ADMINISTERED [None]
  - CEREBROVASCULAR ACCIDENT [None]
  - GAIT DISTURBANCE [None]
  - SKIN DISCOLOURATION [None]
  - SPINAL HAEMATOMA [None]
  - RADICULOPATHY [None]
  - BALANCE DISORDER [None]
  - LOSS OF BLADDER SENSATION [None]
  - SPINAL CORD COMPRESSION [None]
  - NEUROPATHY PERIPHERAL [None]
  - POSTERIOR TIBIAL NERVE INJURY [None]
  - AREFLEXIA [None]
  - MUSCLE CONTRACTIONS INVOLUNTARY [None]
  - INTESTINAL FUNCTIONAL DISORDER [None]
  - HEADACHE [None]
  - FOOT DEFORMITY [None]
  - SCAR [None]
  - EXTRADURAL HAEMATOMA [None]
  - ABASIA [None]
  - MUSCLE SPASMS [None]
  - TENDON INJURY [None]
